FAERS Safety Report 12272286 (Version 1)
Quarter: 2016Q2

REPORT INFORMATION
  Report Type: Report from Study
  Country: US (occurrence: US)
  Receive Date: 20160415
  Receipt Date: 20160415
  Transmission Date: 20160815
  Serious: Yes (Other)
  Sender: FDA-Public Use
  Company Number: US-AMGEN-USASL2016046917

PATIENT
  Age: 55 Year
  Sex: Female

DRUGS (1)
  1. ENBREL [Suspect]
     Active Substance: ETANERCEPT
     Indication: RHEUMATOID ARTHRITIS
     Dosage: 50 MG, QWK
     Route: 065
     Dates: start: 20160107

REACTIONS (13)
  - Thinking abnormal [Unknown]
  - Insomnia [Unknown]
  - Rheumatoid arthritis [Unknown]
  - Memory impairment [Unknown]
  - Rotator cuff syndrome [Unknown]
  - Stress [Unknown]
  - Drug dose omission [Unknown]
  - Impaired driving ability [Unknown]
  - Limb injury [Unknown]
  - Spousal abuse [Unknown]
  - Fatigue [Unknown]
  - Crying [Unknown]
  - Injection site rash [Recovering/Resolving]

NARRATIVE: CASE EVENT DATE: 2016
